FAERS Safety Report 23915705 (Version 1)
Quarter: 2024Q2

REPORT INFORMATION
  Report Type: Spontaneous
  Country: US (occurrence: None)
  Receive Date: 20240528
  Receipt Date: 20240528
  Transmission Date: 20240715
  Serious: Yes (Death)
  Sender: FDA-Public Use
  Company Number: None

PATIENT
  Age: 77 Year
  Sex: Female
  Weight: 78.75 kg

DRUGS (18)
  1. REVLIMID [Suspect]
     Active Substance: LENALIDOMIDE
     Indication: Plasma cell myeloma
     Dosage: FREQUENCY : DAILY;?
     Route: 048
     Dates: start: 20240405, end: 20240503
  2. acyclovir [Concomitant]
  3. aspirin [Concomitant]
  4. BISOPROLOL FUMARATE [Concomitant]
  5. BUSPIRONE [Concomitant]
  6. CYCLOBENZAPRINE [Concomitant]
  7. DEMECLOCYCLINE [Concomitant]
  8. DEXAMETHASONE [Concomitant]
  9. DEXLANSOPRAZOLE [Concomitant]
  10. DILTIAZEM [Concomitant]
  11. FUROSEMIDE [Concomitant]
  12. HYDRALAZINE [Concomitant]
  13. isosorbide mononitrate ER [Concomitant]
  14. LEVOTHYROXINE [Concomitant]
  15. MONTELUKAST [Concomitant]
  16. ONDANSETRON [Concomitant]
  17. oxycodone-acetaminophen [Concomitant]
  18. PROZAC [Concomitant]

REACTIONS (1)
  - Death [None]

NARRATIVE: CASE EVENT DATE: 20240508
